FAERS Safety Report 11129008 (Version 1)
Quarter: 2015Q2

REPORT INFORMATION
  Report Type: Spontaneous
  Country: FR (occurrence: FR)
  Receive Date: 20150521
  Receipt Date: 20150521
  Transmission Date: 20150821
  Serious: Yes (Life-Threatening, Hospitalization, Other)
  Sender: FDA-Public Use
  Company Number: FR-PFIZER INC-2015164621

PATIENT
  Age: 51 Year
  Sex: Male

DRUGS (4)
  1. EFFEXOR [Suspect]
     Active Substance: VENLAFAXINE HYDROCHLORIDE
     Indication: DEPRESSION
     Dosage: 40 DF, SINGLE
     Route: 048
     Dates: start: 20111204, end: 20111204
  2. MOCLAMINE [Interacting]
     Active Substance: MOCLOBEMIDE
     Indication: DEPRESSION
     Dosage: 30 DF, SINGLE
     Route: 048
     Dates: start: 20111204, end: 20111204
  3. LEXOMIL [Concomitant]
     Active Substance: BROMAZEPAM
  4. TERCIAN /00759301/ [Concomitant]
     Active Substance: CYAMEMAZINE

REACTIONS (9)
  - Pulmonary congestion [Recovered/Resolved]
  - Rhabdomyolysis [Recovered/Resolved]
  - Acidosis [Recovered/Resolved]
  - Drug interaction [Recovered/Resolved]
  - Pneumonia [Recovered/Resolved]
  - Serotonin syndrome [Recovered/Resolved]
  - Haemophilus infection [Recovered/Resolved]
  - Suicide attempt [Recovered/Resolved]
  - Intentional overdose [Recovered/Resolved]

NARRATIVE: CASE EVENT DATE: 20111204
